FAERS Safety Report 22212469 (Version 1)
Quarter: 2023Q2

REPORT INFORMATION
  Report Type: Spontaneous
  Country: SE (occurrence: SE)
  Receive Date: 20230414
  Receipt Date: 20230414
  Transmission Date: 20230722
  Serious: Yes (Other)
  Sender: FDA-Public Use
  Company Number: None

PATIENT
  Age: 69 Year
  Sex: Male

DRUGS (1)
  1. MEKTOVI [Suspect]
     Active Substance: BINIMETINIB
     Dosage: 45 MG, BID (2/DAY), 3 TABLETS 2 TIMES DAILY
     Route: 048
     Dates: start: 20230227, end: 20230320

REACTIONS (2)
  - Detachment of retinal pigment epithelium [Unknown]
  - Off label use [Unknown]

NARRATIVE: CASE EVENT DATE: 20230307
